FAERS Safety Report 7384144-0 (Version None)
Quarter: 2011Q1

REPORT INFORMATION
  Report Type: 
  Country: None (occurrence: None)
  Receive Date: 20110330
  Receipt Date: 20110322
  Transmission Date: 20110831
  Serious: Yes (Other)
  Sender: FDA-Public Use
  Company Number: A0920557A

PATIENT
  Sex: Female

DRUGS (5)
  1. MOUTHWASH [Concomitant]
  2. VITAMIN D [Concomitant]
  3. ASPIRIN [Concomitant]
  4. LANOXIN [Suspect]
     Dosage: .125MG IN THE MORNING
  5. THYROID MEDICATION [Concomitant]

REACTIONS (8)
  - AGEUSIA [None]
  - MALAISE [None]
  - DRY MOUTH [None]
  - TREATMENT NONCOMPLIANCE [None]
  - PNEUMONIA [None]
  - PAIN [None]
  - HYPERSENSITIVITY [None]
  - ADVERSE EVENT [None]
